FAERS Safety Report 4751893-X (Version None)
Quarter: 2005Q3

REPORT INFORMATION
  Report Type: 
  Country: None (occurrence: None)
  Receive Date: 20050822
  Receipt Date: 20050513
  Transmission Date: 20060218
  Serious: No
  Sender: FDA-Public Use
  Company Number: PHEH2005US05478

PATIENT
  Age: 62 Year
  Sex: Male

DRUGS (2)
  1. ZELNORM [Suspect]
     Dosage: 6 MG, ORAL
     Route: 048
     Dates: start: 20050501
  2. NYSTATIN [Concomitant]

REACTIONS (1)
  - ERECTILE DYSFUNCTION [None]
